FAERS Safety Report 12949715 (Version 1)
Quarter: 2016Q4

REPORT INFORMATION
  Report Type: Spontaneous
  Country: BR (occurrence: US)
  Receive Date: 20161116
  Receipt Date: 20161116
  Transmission Date: 20170207
  Serious: Yes (Hospitalization)
  Sender: FDA-Public Use
  Company Number: None

PATIENT
  Age: 28 Year
  Sex: Male
  Weight: 83 kg

DRUGS (3)
  1. ALINIA [Suspect]
     Active Substance: NITAZOXANIDE
     Indication: INFECTION PARASITIC
     Dosage: QUANTITY:1 CAPSULE(S); TWICE A DAY; ORAL?
     Route: 048
     Dates: start: 20161025, end: 20161027
  2. SCOPOLAMINE [Concomitant]
     Active Substance: SCOPOLAMINE
  3. MULTIVITAMIN [Concomitant]
     Active Substance: VITAMINS

REACTIONS (3)
  - Chest pain [None]
  - Dizziness [None]
  - Hypertension [None]

NARRATIVE: CASE EVENT DATE: 20161028
